FAERS Safety Report 5119702-7 (Version None)
Quarter: 2006Q4

REPORT INFORMATION
  Report Type: 
  Country: None (occurrence: None)
  Receive Date: 20061003
  Receipt Date: 20060827
  Transmission Date: 20070319
  Serious: Yes (Hospitalization)
  Sender: FDA-Public Use
  Company Number: AT-MERCK-0609AUT00003

PATIENT
  Age: 68 Year
  Sex: Male

DRUGS (3)
  1. PRIMAXIN [Suspect]
     Indication: PERITONITIS
     Route: 042
     Dates: start: 20060621, end: 20060627
  2. FLUCONAZOLE [Concomitant]
     Route: 065
  3. HYDROCHLOROTHIAZIDE AND RAMIPRIL [Concomitant]
     Route: 048

REACTIONS (1)
  - APHTHOUS STOMATITIS [None]
